FAERS Safety Report 9194353 (Version 1)
Quarter: 2013Q1

REPORT INFORMATION
  Report Type: Spontaneous
  Country: US (occurrence: US)
  Receive Date: 20130327
  Receipt Date: 20130327
  Transmission Date: 20140127
  Serious: Yes (Other)
  Sender: FDA-Public Use
  Company Number: US-RB-051453-13

PATIENT
  Age: 0 None
  Sex: Male

DRUGS (3)
  1. SUBOXONE TABLET [Suspect]
     Indication: DRUG DEPENDENCE
     Route: 064
     Dates: start: 2009, end: 20100806
  2. CLONAZEPAM [Suspect]
     Indication: ANXIETY
     Dosage: DOSING DETAILS UNKNOWN, DOSING FREQUENCY: DAILY
     Route: 064
     Dates: start: 2009, end: 20100806
  3. LEXAPRO [Suspect]
     Indication: DEPRESSION
     Dosage: DOSING DETAILS UNKNOWN, DOSING FREQUENCY: DAILY
     Route: 064
     Dates: start: 2009, end: 20100806

REACTIONS (2)
  - Foetal exposure during pregnancy [Recovered/Resolved]
  - Premature baby [Recovered/Resolved]
